FAERS Safety Report 4300837-3 (Version None)
Quarter: 2004Q1

REPORT INFORMATION
  Report Type: 
  Country: None (occurrence: None)
  Receive Date: 20040218
  Receipt Date: 20040203
  Transmission Date: 20041129
  Serious: Yes (Death)
  Sender: FDA-Public Use
  Company Number: M04-INT-015

PATIENT
  Age: 48 Year
  Sex: Female
  Weight: 116 kg

DRUGS (5)
  1. INTEGRILIN [Suspect]
     Indication: CORONARY ANGIOPLASTY
     Dosage: 180 MCG/KG X 1 INTRAVENOUS BOLUS
     Route: 040
     Dates: start: 20040202, end: 20040202
  2. ASPIRIN [Concomitant]
  3. BIVALIRUDIN [Concomitant]
  4. LOVENOX [Concomitant]
  5. PLAVIX [Concomitant]

REACTIONS (5)
  - CATHETER SITE HAEMORRHAGE [None]
  - COAGULATION TIME PROLONGED [None]
  - DEVICE FAILURE [None]
  - HYPOTENSION [None]
  - PLATELET COUNT DECREASED [None]
